FAERS Safety Report 4316450-8 (Version None)
Quarter: 2004Q1

REPORT INFORMATION
  Report Type: 
  Country: None (occurrence: None)
  Receive Date: 20040311
  Receipt Date: 20040225
  Transmission Date: 20041129
  Serious: No
  Sender: FDA-Public Use
  Company Number: A012004100883

PATIENT
  Age: 28 Year
  Sex: Female

DRUGS (4)
  1. ELOXATIN [Suspect]
     Indication: COLON CANCER METASTATIC
     Dosage: 85 MG/M2 Q3W INTRAVENOUS NOS
     Route: 042
     Dates: start: 20040127, end: 20040127
  2. LEUCOVORIN [Concomitant]
  3. 5-FLUOROURACIL (FLUOROURACIL) [Concomitant]
  4. FENTANYL [Concomitant]

REACTIONS (1)
  - VITH NERVE PARALYSIS [None]
